FAERS Safety Report 12863370 (Version 1)
Quarter: 2016Q4

REPORT INFORMATION
  Report Type: Spontaneous
  Country: US (occurrence: US)
  Receive Date: 20161019
  Receipt Date: 20161019
  Transmission Date: 20170207
  Serious: No
  Sender: FDA-Public Use
  Company Number: US-OTSUKA-2016_019554

PATIENT
  Age: 66 Year
  Sex: Female

DRUGS (2)
  1. LIDOCAINE. [Concomitant]
     Active Substance: LIDOCAINE
     Indication: BACK PAIN
     Dosage: UNK
     Route: 065
  2. REXULTI [Suspect]
     Active Substance: BREXPIPRAZOLE
     Indication: MAJOR DEPRESSION
     Dosage: 0.5 MG OR 1 MG
     Route: 065
     Dates: start: 201608

REACTIONS (4)
  - Injury [Unknown]
  - Feeling abnormal [Unknown]
  - Product packaging issue [Unknown]
  - Amnesia [Unknown]

NARRATIVE: CASE EVENT DATE: 201608
